FAERS Safety Report 8096408-6 (Version None)
Quarter: 2012Q1

REPORT INFORMATION
  Report Type: 
  Country: None (occurrence: None)
  Receive Date: 20120129
  Receipt Date: 20111116
  Transmission Date: 20120608
  Serious: No
  Sender: FDA-Public Use
  Company Number: US-ABBOTT-11P-163-0874835-00

PATIENT
  Age: 78 Year
  Sex: Female

DRUGS (7)
  1. PREDNISONE TAB [Concomitant]
     Indication: RHEUMATOID ARTHRITIS
  2. HUMIRA [Suspect]
     Indication: RHEUMATOID ARTHRITIS
     Dates: start: 20111110
  3. PERCOCET [Concomitant]
     Indication: PAIN
     Dosage: 10MG Q 4HRS, PRN. CURRENTLY TAKING 5/DAY
  4. PERCOCET [Concomitant]
     Indication: INSOMNIA
  5. SPIRIVA [Concomitant]
     Indication: CHRONIC OBSTRUCTIVE PULMONARY DISEASE
     Dosage: IN THE EVENING
  6. PLAQUENIL [Concomitant]
     Indication: PRODUCT USED FOR UNKNOWN INDICATION
     Dosage: 1 TAB IN MORNING, 1/2 TAB IN EVENING
  7. SYNTHROID [Concomitant]
     Indication: PRODUCT USED FOR UNKNOWN INDICATION

REACTIONS (2)
  - BURNING SENSATION [None]
  - ARTHRALGIA [None]
